FAERS Safety Report 16675831 (Version 1)
Quarter: 2019Q3

REPORT INFORMATION
  Report Type: Spontaneous
  Country: US (occurrence: US)
  Receive Date: 20190621
  Receipt Date: 20190621
  Transmission Date: 20191004
  Serious: No
  Sender: FDA-Public Use
  Company Number: None

PATIENT
  Age: 58 Year
  Sex: Female

DRUGS (4)
  1. CAPECITABINE. [Concomitant]
     Active Substance: CAPECITABINE
  2. AMLODIPINE [Concomitant]
     Active Substance: AMLODIPINE BESYLATE
  3. OXYCODONE [Concomitant]
     Active Substance: OXYCODONE
  4. TYKERB [Suspect]
     Active Substance: LAPATINIB DITOSYLATE
     Dates: start: 20190603

REACTIONS (1)
  - Nausea [None]

NARRATIVE: CASE EVENT DATE: 20190621
